FAERS Safety Report 10145044 (Version 3)
Quarter: 2014Q3

REPORT INFORMATION
  Report Type: Spontaneous
  Country: US (occurrence: US)
  Receive Date: 20140501
  Receipt Date: 20140828
  Transmission Date: 20150326
  Serious: Yes (Hospitalization, Other)
  Sender: FDA-Public Use
  Company Number: US-MERCK-1404USA015162

PATIENT
  Sex: Male

DRUGS (5)
  1. JANUVIA [Suspect]
     Active Substance: SITAGLIPTIN PHOSPHATE
     Indication: DIABETES MELLITUS
     Dosage: 1 TABLET, ONCE A DAY
     Route: 048
     Dates: start: 201401, end: 201404
  2. ASPIRIN. [Concomitant]
     Active Substance: ASPIRIN
     Dosage: TOTAL DAILY DOSE 50 DF (EXACT UNIT NOT PROVIDED)
  3. ATORVASTATIN [Concomitant]
     Active Substance: ATORVASTATIN
     Dosage: TOTAL DAILY DOSE 40 DF (EXACT UNIT NOT PROVIDED)
  4. LISINOPRIL. [Concomitant]
     Active Substance: LISINOPRIL
     Dosage: TOTAL DAILY DOSE 10 DF (EXACT UNIT NOT PROVIDED)
  5. METFORMIN [Concomitant]
     Active Substance: METFORMIN HYDROCHLORIDE
     Dosage: TOTAL DAILY DOSE 1000 DF (EXACT UNIT NOT PROVIDED)

REACTIONS (1)
  - Adenocarcinoma pancreas [Not Recovered/Not Resolved]

NARRATIVE: CASE EVENT DATE: 2014
